FAERS Safety Report 8603941 (Version 3)
Quarter: 2014Q1

REPORT INFORMATION
  Report Type: Spontaneous
  Country: US (occurrence: US)
  Receive Date: 20120608
  Receipt Date: 20140107
  Transmission Date: 20141002
  Serious: Yes (Disabling)
  Sender: FDA-Public Use
  Company Number: US-ASTRAZENECA-2012SE34932

PATIENT
  Age: 45 Year
  Sex: Female

DRUGS (15)
  1. NEXIUM [Suspect]
     Indication: GASTROOESOPHAGEAL REFLUX DISEASE
     Route: 048
     Dates: start: 201103, end: 201205
  2. NEXIUM [Suspect]
     Indication: GASTRIC ULCER
     Route: 048
     Dates: start: 201103, end: 201205
  3. NEXIUM [Suspect]
     Indication: GASTROOESOPHAGEAL REFLUX DISEASE
     Route: 048
     Dates: start: 201208
  4. NEXIUM [Suspect]
     Indication: GASTRIC ULCER
     Route: 048
     Dates: start: 201208
  5. ZANTAC [Concomitant]
  6. ZANTAC [Concomitant]
     Dosage: GENERIC
  7. PEPCID [Concomitant]
  8. PEPCID [Concomitant]
     Dosage: GENERIC
  9. TUMS [Concomitant]
     Indication: CHEST PAIN
  10. ROLAIDS [Concomitant]
     Indication: CHEST PAIN
     Dosage: AS NEEDED
  11. DOCUSATE SODIUM [Concomitant]
     Indication: GASTROINTESTINAL DISORDER
  12. TRIAMCINOLONE [Concomitant]
     Indication: RASH
  13. DOXY-CYCL [Concomitant]
     Indication: STAPHYLOCOCCAL INFECTION
  14. MANY MED [Concomitant]
  15. OVER THE COUNTER ASPIRIN [Concomitant]

REACTIONS (7)
  - Spinal fracture [Unknown]
  - Depression [Unknown]
  - Osteoporosis [Unknown]
  - Thyroid disorder [Unknown]
  - Calcium deficiency [Unknown]
  - Bone pain [Unknown]
  - Spinal column stenosis [Unknown]
